FAERS Safety Report 21449586 (Version 1)
Quarter: 2022Q4

REPORT INFORMATION
  Report Type: Report from Study
  Country: NL (occurrence: NL)
  Receive Date: 20221013
  Receipt Date: 20221013
  Transmission Date: 20230113
  Serious: Yes (Other)
  Sender: FDA-Public Use
  Company Number: NL-NOVARTISPH-NVSC2022NL229574

PATIENT
  Sex: Female

DRUGS (1)
  1. ACLASTA [Suspect]
     Active Substance: ZOLEDRONIC ACID
     Indication: Osteoporosis
     Dosage: 1 DOSAGE FORM, Q12MO (5 MG) (52 WEEKS)
     Route: 042

REACTIONS (6)
  - Heart rate irregular [Unknown]
  - Peripheral swelling [Unknown]
  - Urinary incontinence [Unknown]
  - Bone pain [Unknown]
  - Arthralgia [Unknown]
  - Myalgia [Unknown]
